FAERS Safety Report 7408571-8 (Version None)
Quarter: 2011Q2

REPORT INFORMATION
  Report Type: 
  Country: None (occurrence: None)
  Receive Date: 20110401
  Receipt Date: 20110321
  Transmission Date: 20111010
  Serious: Yes (Other)
  Sender: FDA-Public Use
  Company Number: 028901

PATIENT
  Sex: Male
  Weight: 108.8633 kg

DRUGS (6)
  1. CARBAMAZEPINE [Concomitant]
  2. LANTUS [Concomitant]
  3. LACOSAMIDE [Suspect]
     Indication: CONVULSION
     Dosage: (200 MG BID ORAL)
     Route: 048
     Dates: start: 20100101
  4. KEPPRA [Suspect]
     Indication: CONVULSION
     Dosage: (3000 MG, 750 MG 2 TABLETS TWICE DAILY ORAL)
     Route: 048
     Dates: start: 20100501
  5. METFORMIN [Concomitant]
  6. CELEXA [Concomitant]

REACTIONS (3)
  - INAPPROPRIATE SCHEDULE OF DRUG ADMINISTRATION [None]
  - CONVULSION [None]
  - SYNCOPE [None]
